FAERS Safety Report 24841111 (Version 1)
Quarter: 2025Q1

REPORT INFORMATION
  Report Type: Spontaneous
  Country: US (occurrence: None)
  Receive Date: 20250114
  Receipt Date: 20250114
  Transmission Date: 20250409
  Serious: Yes (Hospitalization)
  Sender: FDA-CTU
  Company Number: None

PATIENT
  Age: 50 Year
  Sex: Female

DRUGS (10)
  1. DIMETHYL FUMARATE [Suspect]
     Active Substance: DIMETHYL FUMARATE
     Indication: Multiple sclerosis
     Dosage: FREQUENCY : TWICE A DAY;?
     Route: 048
     Dates: start: 20240312
  2. ATORVASTATIN [Concomitant]
     Active Substance: ATORVASTATIN
  3. CARVEDI LOL 25MG [Concomitant]
  4. CLONIDINE [Concomitant]
     Active Substance: CLONIDINE
  5. ELIQUIS [Concomitant]
     Active Substance: APIXABAN
  6. FARXIGA [Concomitant]
     Active Substance: DAPAGLIFLOZIN PROPANEDIOL
  7. LANTUS [Concomitant]
     Active Substance: INSULIN GLARGINE
  8. LOSARTAN [Concomitant]
     Active Substance: LOSARTAN
  9. PREGABALIN [Concomitant]
     Active Substance: PREGABALIN
  10. SPIRONOLACTONE [Concomitant]
     Active Substance: SPIRONOLACTONE

REACTIONS (7)
  - Neck pain [None]
  - Arthralgia [None]
  - Nuchal rigidity [None]
  - Musculoskeletal stiffness [None]
  - Central nervous system lesion [None]
  - Blood glucose increased [None]
  - Dyspnoea [None]

NARRATIVE: CASE EVENT DATE: 20241215
